FAERS Safety Report 4607944-6 (Version None)
Quarter: 2005Q1

REPORT INFORMATION
  Report Type: 
  Country: None (occurrence: None)
  Receive Date: 20050228
  Receipt Date: 20041102
  Transmission Date: 20050727
  Serious: No
  Sender: FDA-Public Use
  Company Number: FABR-10859

PATIENT
  Age: 62 Year
  Sex: Male
  Weight: 94.3482 kg

DRUGS (9)
  1. FABRAZYME [Suspect]
     Indication: FABRY'S DISEASE
     Dosage: 85 MG Q2WKS IV
     Route: 042
     Dates: start: 20040122
  2. LASIX [Concomitant]
  3. TOPROL-XL [Concomitant]
  4. CALCITRIOL [Concomitant]
  5. GLIPIZIDE [Concomitant]
  6. ASPIRIN [Concomitant]
  7. PRAVACHOL [Concomitant]
  8. FOLIC ACID [Concomitant]
  9. TYLENOL (CAPLET) [Concomitant]

REACTIONS (5)
  - BACK PAIN [None]
  - BLOOD PRESSURE INCREASED [None]
  - CHEST DISCOMFORT [None]
  - HEART RATE IRREGULAR [None]
  - MUSCULOSKELETAL DISCOMFORT [None]
